FAERS Safety Report 7251522-X (Version None)
Quarter: 2011Q1

REPORT INFORMATION
  Report Type: 
  Country: None (occurrence: None)
  Receive Date: 20110128
  Receipt Date: 20110114
  Transmission Date: 20110831
  Serious: Yes (Disabling, Other)
  Sender: FDA-Public Use
  Company Number: US-ELI_LILLY_AND_COMPANY-US201101003776

PATIENT
  Age: 45 Year
  Sex: Female

DRUGS (5)
  1. TRAMADOL [Concomitant]
  2. INDOMETHACIN [Concomitant]
  3. PRILOSEC [Concomitant]
  4. FORTEO [Suspect]
     Indication: OSTEOPOROSIS
     Dosage: 20 UG, DAILY (1/D)
     Dates: end: 20110102
  5. PREDNISONE [Concomitant]

REACTIONS (1)
  - FEMUR FRACTURE [None]
